FAERS Safety Report 11849208 (Version 1)
Quarter: 2015Q4

REPORT INFORMATION
  Report Type: Spontaneous
  Country: US (occurrence: None)
  Receive Date: 20151217
  Receipt Date: 20151217
  Transmission Date: 20160305
  Serious: No
  Sender: FDA-Public Use
  Company Number: None

PATIENT
  Age: 26 Year
  Sex: Female
  Weight: 61.24 kg

DRUGS (2)
  1. MIRENA [Suspect]
     Active Substance: LEVONORGESTREL
  2. SPIRONOLACTONE. [Concomitant]
     Active Substance: SPIRONOLACTONE

REACTIONS (7)
  - Fungal infection [None]
  - Pain [None]
  - Ovarian cyst [None]
  - Acne [None]
  - Device difficult to use [None]
  - Stress [None]
  - Bacterial infection [None]

NARRATIVE: CASE EVENT DATE: 20151215
